FAERS Safety Report 5020998-0 (Version None)
Quarter: 2006Q2

REPORT INFORMATION
  Report Type: 
  Country: None (occurrence: None)
  Receive Date: 20060608
  Receipt Date: 20060531
  Transmission Date: 20061013
  Serious: Yes (Death)
  Sender: FDA-Public Use
  Company Number: AT-JNJFOC-20060600022

PATIENT
  Sex: Female
  Weight: 28 kg

DRUGS (6)
  1. DURAGESIC-100 [Suspect]
     Route: 062
  2. DURAGESIC-100 [Suspect]
     Route: 062
  3. DURAGESIC-100 [Suspect]
     Indication: PAIN
     Route: 062
  4. NOVALGIN [Concomitant]
     Indication: PAIN
     Route: 065
  5. ACC HEXAL [Concomitant]
     Route: 065
  6. GLADEM [Concomitant]
     Route: 065

REACTIONS (2)
  - CACHEXIA [None]
  - CEREBROVASCULAR ACCIDENT [None]
